FAERS Safety Report 17639690 (Version 1)
Quarter: 2020Q2

REPORT INFORMATION
  Report Type: Spontaneous
  Country: US (occurrence: US)
  Receive Date: 20200407
  Receipt Date: 20200407
  Transmission Date: 20200713
  Serious: No
  Sender: FDA-Public Use
  Company Number: US-BIOMARINAP-US-2020-129084

PATIENT
  Sex: Male
  Weight: 61 kg

DRUGS (1)
  1. VIMIZIM [Suspect]
     Active Substance: ELOSULFASE ALFA
     Indication: MUCOPOLYSACCHARIDOSIS IV
     Dosage: 120 MILLIGRAM, QW
     Route: 042
     Dates: start: 20160913, end: 20200227

REACTIONS (1)
  - Catheter site pain [Unknown]
